FAERS Safety Report 7927846-7 (Version None)
Quarter: 2011Q4

REPORT INFORMATION
  Report Type: 
  Country: None (occurrence: None)
  Receive Date: 20111118
  Receipt Date: 20111118
  Transmission Date: 20120403
  Serious: Yes (Other)
  Sender: FDA-Public Use
  Company Number: None

PATIENT
  Sex: Male
  Weight: 65.317 kg

DRUGS (1)
  1. XGEVA [Suspect]
     Indication: METASTASES TO BONE
     Dosage: 120MG
     Route: 058
     Dates: start: 20111020, end: 20111020

REACTIONS (2)
  - HYPOCALCAEMIA [None]
  - RENAL IMPAIRMENT [None]
